FAERS Safety Report 5945931-6 (Version None)
Quarter: 2008Q4

REPORT INFORMATION
  Report Type: 
  Country: None (occurrence: None)
  Receive Date: 20081107
  Receipt Date: 20081107
  Transmission Date: 20090506
  Serious: Yes (Life-Threatening, Hospitalization)
  Sender: FDA-Public Use
  Company Number: None

PATIENT

DRUGS (2)
  1. DRAMAMINE [Suspect]
     Indication: MOTION SICKNESS
     Dosage: TAKEN IN 20-30 TABS AT A TIME ANYTIME PO
     Route: 048
  2. DRAMAMINE [Suspect]
     Indication: NAUSEA
     Dosage: TAKEN IN 20-30 TABS AT A TIME ANYTIME PO
     Route: 048

REACTIONS (2)
  - INTENTIONAL DRUG MISUSE [None]
  - MEDICATION ERROR [None]
